FAERS Safety Report 5695545-0 (Version None)
Quarter: 2008Q2

REPORT INFORMATION
  Report Type: 
  Country: None (occurrence: None)
  Receive Date: 20080407
  Receipt Date: 20080402
  Transmission Date: 20081010
  Serious: Yes (Other)
  Sender: FDA-Public Use
  Company Number: GR-BRISTOL-MYERS SQUIBB COMPANY-14137806

PATIENT
  Age: 54 Year
  Sex: Female

DRUGS (5)
  1. TAXOL [Suspect]
     Indication: BREAST CANCER
  2. ZANTAC [Concomitant]
  3. FENISTIL [Concomitant]
  4. DECADRON [Concomitant]
  5. NEULASTA [Concomitant]

REACTIONS (1)
  - DERMATITIS [None]
